FAERS Safety Report 11317368 (Version 1)
Quarter: 2015Q3

REPORT INFORMATION
  Report Type: Spontaneous
  Country: US (occurrence: US)
  Receive Date: 20150728
  Receipt Date: 20150728
  Transmission Date: 20151125
  Serious: Yes (Hospitalization)
  Sender: FDA-Public Use
  Company Number: US-B.I. PHARMACEUTICALS,INC./RIDGEFIELD-2015-BI-40171BP

PATIENT
  Age: 50 Year
  Sex: Male

DRUGS (2)
  1. SPIRIVA [Suspect]
     Active Substance: TIOTROPIUM BROMIDE MONOHYDRATE
     Indication: RHINITIS
     Dosage: 18 MCG
     Route: 055
     Dates: start: 201506
  2. SPIRIVA [Suspect]
     Active Substance: TIOTROPIUM BROMIDE MONOHYDRATE
     Indication: SINUSITIS

REACTIONS (2)
  - Off label use [Unknown]
  - Splenic rupture [Unknown]

NARRATIVE: CASE EVENT DATE: 201506
